FAERS Safety Report 9490170 (Version 2)
Quarter: 2013Q3

REPORT INFORMATION
  Report Type: Spontaneous
  Country: CA (occurrence: CA)
  Receive Date: 20130830
  Receipt Date: 20130830
  Transmission Date: 20140515
  Serious: Yes (Life-Threatening, Hospitalization)
  Sender: FDA-Public Use
  Company Number: CA-ALVOGEN-2013AL000463

PATIENT
  Age: 45 Year
  Sex: Female

DRUGS (1)
  1. MACROBID [Suspect]
     Indication: CYSTITIS
     Route: 048
     Dates: start: 20120727, end: 20120727

REACTIONS (9)
  - Asthma [Recovering/Resolving]
  - Syncope [Recovering/Resolving]
  - Swelling face [Recovering/Resolving]
  - Rash generalised [Not Recovered/Not Resolved]
  - Nausea [Recovering/Resolving]
  - Diarrhoea [Recovering/Resolving]
  - Abdominal pain [Recovering/Resolving]
  - Dizziness [Recovering/Resolving]
  - Pruritus [Recovering/Resolving]
